FAERS Safety Report 9359387 (Version 1)
Quarter: 2013Q2

REPORT INFORMATION
  Report Type: Spontaneous
  Country: US (occurrence: US)
  Receive Date: 20130620
  Receipt Date: 20130620
  Transmission Date: 20140414
  Serious: No
  Sender: FDA-Public Use
  Company Number: US-US-EMD SERONO, INC.-7141344

PATIENT
  Sex: Male

DRUGS (1)
  1. REBIF [Suspect]
     Indication: PRODUCT USED FOR UNKNOWN INDICATION
     Route: 058
     Dates: start: 20120522

REACTIONS (5)
  - Weight decreased [Unknown]
  - Laceration [Recovered/Resolved]
  - Concussion [Recovered/Resolved]
  - Road traffic accident [Recovering/Resolving]
  - Influenza like illness [Not Recovered/Not Resolved]
